FAERS Safety Report 10246558 (Version 1)
Quarter: 2014Q2

REPORT INFORMATION
  Report Type: Spontaneous
  Country: US (occurrence: None)
  Receive Date: 20140617
  Receipt Date: 20140617
  Transmission Date: 20141212
  Serious: Yes (Other)
  Sender: FDA-Public Use
  Company Number: None

PATIENT
  Age: 47 Year
  Sex: Male
  Weight: 72.58 kg

DRUGS (1)
  1. CARBIDOPA/LEVODOPA [Suspect]
     Indication: PERIODIC LIMB MOVEMENT DISORDER
     Dosage: 1 TAB AT BEDTIME TAKEN BY MOUTH
     Route: 048
     Dates: start: 20110520, end: 20110602

REACTIONS (2)
  - Myoclonus [None]
  - Muscle contractions involuntary [None]
